FAERS Safety Report 12604864 (Version 1)
Quarter: 2016Q3

REPORT INFORMATION
  Report Type: Spontaneous
  Country: US (occurrence: US)
  Receive Date: 20160728
  Receipt Date: 20160728
  Transmission Date: 20161109
  Serious: No
  Sender: FDA-Public Use
  Company Number: US-ELI_LILLY_AND_COMPANY-US201607011946

PATIENT
  Age: 66 Year
  Sex: Male

DRUGS (5)
  1. HUMALOG [Suspect]
     Active Substance: INSULIN LISPRO
     Dosage: 12 DF, QD CARBOHYDRATE RATIO OF 1 UNIT
     Dates: start: 201506
  2. HUMALOG [Suspect]
     Active Substance: INSULIN LISPRO
     Dosage: 12 DF, QD CARBOHYDRATE RATIO OF 1 UNIT
     Dates: start: 2003, end: 2008
  3. LANTUS [Concomitant]
     Active Substance: INSULIN GLARGINE
  4. HUMALOG [Suspect]
     Active Substance: INSULIN LISPRO
     Indication: TYPE 1 DIABETES MELLITUS
     Dosage: 10 DF, QD CARBOHYDRATE RATIO OF 1 UNIT
     Dates: start: 2003, end: 2008
  5. HUMALOG [Suspect]
     Active Substance: INSULIN LISPRO
     Dosage: 10 DF, QD CARBOHYDRATE RATIO OF 1 UNIT
     Dates: start: 201511

REACTIONS (5)
  - Cataract [Recovering/Resolving]
  - Blood glucose increased [Recovered/Resolved]
  - Toothache [Recovering/Resolving]
  - Underdose [Recovered/Resolved]
  - Blood glucose increased [Recovered/Resolved]

NARRATIVE: CASE EVENT DATE: 20160721
